FAERS Safety Report 11872794 (Version 3)
Quarter: 2018Q2

REPORT INFORMATION
  Report Type: Spontaneous
  Country: US (occurrence: US)
  Receive Date: 20151228
  Receipt Date: 20180511
  Transmission Date: 20180711
  Serious: Yes (Hospitalization)
  Sender: FDA-Public Use
  Company Number: US-PFIZER INC-2015422385

PATIENT
  Age: 55 Year
  Sex: Female
  Weight: 59.41 kg

DRUGS (2)
  1. METHOTREXATE. [Concomitant]
     Active Substance: METHOTREXATE
     Dosage: UNK
     Dates: end: 20180302
  2. XELJANZ [Suspect]
     Active Substance: TOFACITINIB CITRATE
     Indication: RHEUMATOID ARTHRITIS
     Dosage: 5 MG, 2X/DAY
     Route: 048
     Dates: start: 2015, end: 20180302

REACTIONS (5)
  - Sinusitis [Unknown]
  - Localised infection [Unknown]
  - Weight increased [Unknown]
  - Urinary tract infection [Recovering/Resolving]
  - Arthritis infective [Unknown]

NARRATIVE: CASE EVENT DATE: 201702
